FAERS Safety Report 12287925 (Version 2)
Quarter: 2016Q3

REPORT INFORMATION
  Report Type: Report from Study
  Country: JP (occurrence: JP)
  Receive Date: 20160420
  Receipt Date: 20160803
  Transmission Date: 20161109
  Serious: Yes (Other)
  Sender: FDA-Public Use
  Company Number: JP-INCYTE CORPORATION-2014IN003506

PATIENT
  Sex: Female

DRUGS (5)
  1. PRIMOBOLAN-DEPOT [Concomitant]
     Active Substance: METHENOLONE ENANTHATE
     Indication: MYELOFIBROSIS
     Dosage: 10 MG, QD
     Route: 048
     Dates: start: 20150514
  2. JAKAFI [Suspect]
     Active Substance: RUXOLITINIB
     Dosage: 10 MG, BID
     Route: 048
     Dates: start: 20141002
  3. NESP [Concomitant]
     Active Substance: DARBEPOETIN ALFA
     Indication: PRODUCT USED FOR UNKNOWN INDICATION
     Dosage: 120 UG, UNK
     Route: 065
  4. JAKAFI [Suspect]
     Active Substance: RUXOLITINIB
     Indication: MYELOFIBROSIS
     Dosage: 5 MG, BID
     Route: 048
     Dates: start: 20140918, end: 20141001
  5. NESP [Concomitant]
     Active Substance: DARBEPOETIN ALFA
     Indication: MYELOFIBROSIS

REACTIONS (7)
  - Anaemia [Recovering/Resolving]
  - Face oedema [Recovering/Resolving]
  - Blood uric acid increased [Unknown]
  - Oedema peripheral [Recovering/Resolving]
  - Blood lactate dehydrogenase increased [Unknown]
  - Myelofibrosis [Unknown]
  - Blood urea increased [Unknown]

NARRATIVE: CASE EVENT DATE: 20141002
